FAERS Safety Report 9415761 (Version 6)
Quarter: 2016Q1

REPORT INFORMATION
  Report Type: Report from Study
  Country: US (occurrence: US)
  Receive Date: 20130724
  Receipt Date: 20160311
  Transmission Date: 20160526
  Serious: Yes (Other)
  Sender: FDA-Public Use
  Company Number: US-AMGEN-USASP2013050115

PATIENT
  Age: 59 Year
  Sex: Female
  Weight: 59.86 kg

DRUGS (3)
  1. PROLIA [Suspect]
     Active Substance: DENOSUMAB
     Dosage: 1 ML, Q6MO
     Route: 058
  2. PROLIA [Suspect]
     Active Substance: DENOSUMAB
     Indication: OSTEOPOROSIS
     Dosage: 1 ML, Q6MO
     Route: 058
     Dates: start: 20120309
  3. PROLIA [Suspect]
     Active Substance: DENOSUMAB
     Dosage: 1 ML, Q6MO
     Route: 058

REACTIONS (19)
  - Eosinophilia [Unknown]
  - Drug hypersensitivity [Unknown]
  - Asthenia [Not Recovered/Not Resolved]
  - Back pain [Recovering/Resolving]
  - White blood cell count increased [Unknown]
  - Monocyte count abnormal [Unknown]
  - Weight decreased [Unknown]
  - Blood alkaline phosphatase increased [Unknown]
  - Plasma cell myeloma [Not Recovered/Not Resolved]
  - Respiratory disorder [Recovered/Resolved]
  - Abdominal discomfort [Unknown]
  - Bone pain [Unknown]
  - Pneumonia [Recovered/Resolved]
  - Hypergammaglobulinaemia benign monoclonal [Unknown]
  - Arthralgia [Recovering/Resolving]
  - Gait disturbance [Unknown]
  - Spinal deformity [Unknown]
  - Haemoglobin abnormal [Unknown]
  - Anaemia [Unknown]

NARRATIVE: CASE EVENT DATE: 20130308
